FAERS Safety Report 9181531 (Version 1)
Quarter: 2013Q1

REPORT INFORMATION
  Report Type: Report from Study
  Country: AR (occurrence: AR)
  Receive Date: 20130322
  Receipt Date: 20130322
  Transmission Date: 20140127
  Serious: Yes (Hospitalization)
  Sender: FDA-Public Use
  Company Number: AR-BRISTOL-MYERS SQUIBB COMPANY-17448093

PATIENT
  Age: 57 Year
  Sex: Female

DRUGS (3)
  1. ERBITUX SOLN FOR INF [Suspect]
     Indication: COLORECTAL CANCER METASTATIC
     Route: 042
     Dates: start: 20121204, end: 20130221
  2. OXALIPLATIN [Concomitant]
     Indication: COLORECTAL CANCER METASTATIC
  3. CAPECITABINE [Concomitant]
     Indication: COLORECTAL CANCER METASTATIC

REACTIONS (2)
  - Dehydration [Unknown]
  - Depressed level of consciousness [Unknown]
